FAERS Safety Report 6203689-X (Version None)
Quarter: 2009Q2

REPORT INFORMATION
  Report Type: 
  Country: None (occurrence: None)
  Receive Date: 20090527
  Receipt Date: 20090522
  Transmission Date: 20091009
  Serious: No
  Sender: FDA-Public Use
  Company Number: US-B.I. PHARMACEUTICALS,INC./RIDGEFIELD-2009-BP-06390BP

PATIENT
  Age: 58 Year
  Sex: Male

DRUGS (3)
  1. MIRAPEX [Suspect]
     Indication: PARKINSON'S DISEASE
     Dosage: 2MG
     Route: 048
     Dates: start: 20080501, end: 20090401
  2. NORTRIPTYLINE HCL [Concomitant]
     Indication: DEPRESSION
     Route: 048
     Dates: start: 20071201
  3. REQUIP XL [Concomitant]
     Indication: PARKINSON'S DISEASE
     Dosage: 6MG
     Route: 048
     Dates: start: 20090401

REACTIONS (3)
  - DYSKINESIA [None]
  - FATIGUE [None]
  - PATHOLOGICAL GAMBLING [None]
